FAERS Safety Report 10388031 (Version 2)
Quarter: 2014Q3

REPORT INFORMATION
  Report Type: Report from Study
  Country: US (occurrence: US)
  Receive Date: 20140815
  Receipt Date: 20140815
  Transmission Date: 20150326
  Serious: Yes (Other)
  Sender: FDA-Public Use
  Company Number: US-PFIZER INC-2014222683

PATIENT
  Age: 58 Year
  Sex: Male

DRUGS (4)
  1. MANNITOL. [Concomitant]
     Active Substance: MANNITOL
  2. CISPLATIN. [Suspect]
     Active Substance: CISPLATIN
     Indication: LUNG ADENOCARCINOMA
     Dosage: 25 MG/M 2 (60-MIN INTRAVENOUS INFUSION), CYCLIC (ONCE A WEEK FOR 7 WEEKS (WEEKS 2-8)
     Route: 042
  3. CELECOXIB. [Suspect]
     Active Substance: CELECOXIB
     Indication: LUNG ADENOCARCINOMA
     Dosage: 200 MG, DAILY, BEGINNING 5 DAYS BEFORE THE CHEMORADIATION
     Route: 048
  4. IRINOTECAN HCL [Suspect]
     Active Substance: IRINOTECAN HYDROCHLORIDE
     Indication: LUNG ADENOCARCINOMA
     Dosage: 30 MG/M 2 (90-MIN INTRAVENOUS INFUSION, BEFORE CISPLATIN), CYCLIC (ONCE A WEEK FOR 7 WEEKS (ON DAY 1
     Route: 042

REACTIONS (1)
  - Pneumonitis [Unknown]
